FAERS Safety Report 10551172 (Version 1)
Quarter: 2014Q4

REPORT INFORMATION
  Report Type: Spontaneous
  Country: CN (occurrence: None)
  Receive Date: 20141027
  Receipt Date: 20141027
  Transmission Date: 20150529
  Serious: Yes (Hospitalization)
  Sender: FDA-Public Use
  Company Number: 2014SEB00041

PATIENT
  Age: 86 Year
  Sex: Female

DRUGS (5)
  1. MIACALCIC [Suspect]
     Active Substance: CALCITONIN SALMON
     Indication: ARTHRALGIA
     Route: 030
     Dates: start: 20140516, end: 20140521
  2. MIACALCIC [Suspect]
     Active Substance: CALCITONIN SALMON
     Indication: DIABETES MELLITUS
     Route: 030
     Dates: start: 20140516, end: 20140521
  3. LIGUSTRAZINE [Concomitant]
     Active Substance: TETRAMETHYLPYRAZINE
  4. MIACALCIC [Suspect]
     Active Substance: CALCITONIN SALMON
     Indication: BONE DENSITY DECREASED
     Route: 030
     Dates: start: 20140516, end: 20140521
  5. MIACALCIC [Suspect]
     Active Substance: CALCITONIN SALMON
     Indication: BLOOD PRESSURE ABNORMAL
     Route: 030
     Dates: start: 20140516, end: 20140521

REACTIONS (3)
  - Vertigo [None]
  - Nausea [None]
  - Vomiting [None]

NARRATIVE: CASE EVENT DATE: 20140521
